FAERS Safety Report 5690153-X (Version None)
Quarter: 2008Q2

REPORT INFORMATION
  Report Type: 
  Country: None (occurrence: None)
  Receive Date: 20080401
  Receipt Date: 20080324
  Transmission Date: 20081010
  Serious: Yes (Disabling)
  Sender: FDA-Public Use
  Company Number: PHHY2008MT04027

PATIENT
  Age: 50 Year
  Sex: Female

DRUGS (1)
  1. DIOVAN [Suspect]
     Indication: HYPERTENSION
     Dosage: 80 MG, UNK
     Route: 048
     Dates: start: 20071210, end: 20080211

REACTIONS (3)
  - CONDITION AGGRAVATED [None]
  - GINGIVAL HYPERTROPHY [None]
  - TOOTH LOSS [None]
